FAERS Safety Report 26041731 (Version 1)
Quarter: 2025Q4

REPORT INFORMATION
  Report Type: Spontaneous
  Country: US (occurrence: US)
  Receive Date: 20251113
  Receipt Date: 20251113
  Transmission Date: 20260117
  Serious: No
  Sender: SANOFI AVENTIS
  Company Number: US-SA-2025SA333019

PATIENT
  Sex: Male
  Weight: 85.27 kg

DRUGS (7)
  1. DUPIXENT [Suspect]
     Active Substance: DUPILUMAB
     Indication: Dermatitis atopic
     Dosage: 300 MG, QOW
     Route: 058
     Dates: end: 202510
  2. KETOCONAZOLE [Concomitant]
     Active Substance: KETOCONAZOLE
  3. TRIAMCINOLONE ACETONIDE [Concomitant]
     Active Substance: TRIAMCINOLONE ACETONIDE
  4. VITAMIN D3 [Concomitant]
     Active Substance: CHOLECALCIFEROL
  5. EBGLYSS [Concomitant]
     Active Substance: LEBRIKIZUMAB-LBKZ
  6. TAMSULOSIN HYDROCHLORIDE [Concomitant]
     Active Substance: TAMSULOSIN HYDROCHLORIDE
  7. CARVEDILOL [Concomitant]
     Active Substance: CARVEDILOL

REACTIONS (2)
  - Skin weeping [Recovering/Resolving]
  - Pruritus [Not Recovered/Not Resolved]
